FAERS Safety Report 5080057-8 (Version None)
Quarter: 2006Q3

REPORT INFORMATION
  Report Type: 
  Country: None (occurrence: None)
  Receive Date: 20060810
  Receipt Date: 20060728
  Transmission Date: 20061208
  Serious: Yes (Hospitalization, Other)
  Sender: FDA-Public Use
  Company Number: 2006093432

PATIENT
  Age: 44 Year
  Sex: Female
  Weight: 84.369 kg

DRUGS (4)
  1. ZMAX [Suspect]
     Indication: SINUSITIS
     Dosage: 2 GRAM (2 GRAM, 1 IN 1 D), ORAL
     Route: 048
     Dates: start: 20060725, end: 20060725
  2. PHENERGAN (PROMETHAZINE HYDROCHLORIDE) [Concomitant]
  3. VITAMINS (VITAMINS) [Concomitant]
  4. HORMONAL REPLACEMENT CREAM (ALL OTHER THERAPEUTIC PRODUCTS) [Concomitant]

REACTIONS (17)
  - ABDOMINAL PAIN UPPER [None]
  - COLITIS [None]
  - DELIRIUM [None]
  - DIARRHOEA [None]
  - DRUG INEFFECTIVE [None]
  - DYSPNOEA [None]
  - FATIGUE [None]
  - HAEMORRHAGE [None]
  - HEADACHE [None]
  - HYPERHIDROSIS [None]
  - INITIAL INSOMNIA [None]
  - INTESTINAL HAEMORRHAGE [None]
  - NAUSEA [None]
  - PYREXIA [None]
  - RECTAL HAEMORRHAGE [None]
  - VOMITING [None]
  - WEIGHT DECREASED [None]
